FAERS Safety Report 24205487 (Version 3)
Quarter: 2024Q3

REPORT INFORMATION
  Report Type: Spontaneous
  Country: US (occurrence: US)
  Receive Date: 20240813
  Receipt Date: 20240913
  Transmission Date: 20241016
  Serious: No
  Sender: PFIZER
  Company Number: US-PFIZER INC-202400234065

PATIENT
  Age: 46 Year
  Sex: Female

DRUGS (1)
  1. LORBRENA [Suspect]
     Active Substance: LORLATINIB
     Indication: Non-small cell lung cancer
     Dosage: 75 MG, 1X/DAY
     Dates: start: 20240103

REACTIONS (2)
  - Therapeutic response unexpected [Unknown]
  - Energy increased [Unknown]

NARRATIVE: CASE EVENT DATE: 20240101
